FAERS Safety Report 8807152 (Version 1)
Quarter: 2012Q4

REPORT INFORMATION
  Report Type: 
  Country: US (occurrence: US)
  Receive Date: 20120925
  Receipt Date: 20120925
  Transmission Date: 20130627
  Serious: Yes (Hospitalization)
  Sender: FDA-Public Use
  Company Number: US-ARROW-2012-16018

PATIENT
  Sex: Female
  Weight: 105 kg

DRUGS (7)
  1. PRAVASTATIN SODIUM [Suspect]
     Indication: BLOOD CHOLESTEROL INCREASED
     Dosage: UNK
     Route: 065
     Dates: start: 2011, end: 201207
  2. NIASPAN [Suspect]
     Indication: BLOOD CHOLESTEROL INCREASED
     Dosage: 1000 mg (1000 mg, 1 in 1 D)
     Route: 048
     Dates: start: 2011, end: 2011
  3. HYDROCHLOORTHIAZIDE [Concomitant]
     Indication: FLUID RETENTION
     Dosage: UNK
     Route: 065
  4. BENAZEPRIL [Concomitant]
     Indication: HYPERTENSION
     Dosage: UNK
     Route: 065
  5. LEVOTHYROXINE [Concomitant]
     Indication: THYROIDECTOMY
     Dosage: UNK
     Route: 065
  6. METFORMIN [Concomitant]
     Indication: DIABETES MELLITUS
     Dosage: UNK
     Route: 065
  7. GLIPIZIDE [Concomitant]
     Indication: DIABETES MELLITUS
     Dosage: UNK
     Route: 065

REACTIONS (8)
  - Myalgia [Recovered/Resolved]
  - Sensory disturbance [Unknown]
  - Erythema [Unknown]
  - Dyspnoea [Unknown]
  - Chest discomfort [Unknown]
  - Pain of skin [Unknown]
  - Pruritus [Unknown]
  - Flushing [Unknown]
